FAERS Safety Report 5385611-1 (Version None)
Quarter: 2007Q3

REPORT INFORMATION
  Report Type: 
  Country: None (occurrence: None)
  Receive Date: 20070712
  Receipt Date: 20070705
  Transmission Date: 20080115
  Serious: Yes (Death)
  Sender: FDA-Public Use
  Company Number: US-SANOFI-SYNTHELABO-A03200704471

PATIENT
  Sex: Male

DRUGS (3)
  1. PLAVIX [Suspect]
     Indication: CARDIAC DISORDER
     Dosage: UNK
     Route: 048
  2. HIGH CHOLESTEROL MEDICATION NOS [Concomitant]
     Dosage: UNK
     Route: 048
  3. BLOOD PRESSURE MEDICATION NOS [Concomitant]
     Dosage: UNK
     Route: 048

REACTIONS (1)
  - PROSTATE CANCER [None]
